FAERS Safety Report 7374624-6 (Version None)
Quarter: 2011Q1

REPORT INFORMATION
  Report Type: 
  Country: None (occurrence: None)
  Receive Date: 20110325
  Receipt Date: 20100512
  Transmission Date: 20110831
  Serious: No
  Sender: FDA-Public Use
  Company Number: US-MYLANLABS-2010S1008588

PATIENT
  Age: 50 Year
  Sex: Female

DRUGS (5)
  1. SOMA [Concomitant]
  2. BENICAR [Concomitant]
  3. FENTANYL-100 [Suspect]
     Indication: PAIN
     Dosage: CHANGED Q48H
     Route: 062
     Dates: start: 20070101
  4. OXYCODONE [Concomitant]
  5. SYNTHROID [Concomitant]

REACTIONS (3)
  - HOT FLUSH [None]
  - PAIN [None]
  - DRUG EFFECT DECREASED [None]
